FAERS Safety Report 9831888 (Version 1)
Quarter: 2014Q1

REPORT INFORMATION
  Report Type: Spontaneous
  Country: US (occurrence: US)
  Receive Date: 20140121
  Receipt Date: 20140121
  Transmission Date: 20141002
  Serious: Yes (Other)
  Sender: FDA-Public Use
  Company Number: US-PFIZER INC-2014016139

PATIENT
  Sex: Female

DRUGS (1)
  1. LYRICA [Suspect]
     Dosage: UNK

REACTIONS (9)
  - Intentional drug misuse [Unknown]
  - Insomnia [Unknown]
  - Confusional state [Unknown]
  - Eating disorder [Unknown]
  - Cognitive disorder [Unknown]
  - Activities of daily living impaired [Unknown]
  - Feeling cold [Unknown]
  - Hyperhidrosis [Unknown]
  - Euphoric mood [Unknown]
